FAERS Safety Report 9401435 (Version 1)
Quarter: 2013Q3

REPORT INFORMATION
  Report Type: Report from Study
  Country: NL (occurrence: NL)
  Receive Date: 20130716
  Receipt Date: 20130716
  Transmission Date: 20140515
  Serious: Yes (Hospitalization)
  Sender: FDA-Public Use
  Company Number: NL-ROCHE-1231139

PATIENT
  Age: 37 Year
  Sex: Female

DRUGS (9)
  1. TRASTUZUMAB [Suspect]
     Indication: BREAST CANCER RECURRENT
     Dosage: LAST DOSE ON 20/JUN/2013, THERAPY DURATION : 3 WEEKS
     Route: 042
     Dates: start: 20130417
  2. BEVACIZUMAB [Suspect]
     Indication: BREAST CANCER RECURRENT
     Dosage: LAST DATE OF ADMINISTRATION: 27/JUN/2013 THERAPY DURATION : 3 WEEKS
     Route: 042
     Dates: start: 20130418
  3. FENTANYL [Suspect]
     Indication: BREAST CANCER RECURRENT
     Dosage: PLASTER
     Route: 065
     Dates: start: 20130425
  4. FENTANYL [Suspect]
     Route: 065
     Dates: start: 20130508
  5. FENTANYL [Suspect]
     Dosage: DAILY DOSE: 12UG/H
     Route: 065
     Dates: start: 20130617
  6. LEVOTHYROXINE [Concomitant]
     Route: 065
     Dates: start: 20130125
  7. RAMIPRIL [Concomitant]
     Route: 065
     Dates: start: 20120124
  8. PREGABALINE [Concomitant]
     Route: 065
     Dates: start: 20130616
  9. METOCLOPRAMIDE [Concomitant]
     Route: 065
     Dates: start: 20130124, end: 20130618

REACTIONS (3)
  - Pyrexia [Recovered/Resolved]
  - Nausea [Recovered/Resolved]
  - Pyrexia [Recovered/Resolved]
